FAERS Safety Report 8485236 (Version 3)
Quarter: 2012Q4

REPORT INFORMATION
  Report Type: Report from Study
  Country: NL (occurrence: NL)
  Receive Date: 20120330
  Receipt Date: 20120921
  Transmission Date: 20130627
  Serious: Yes (Hospitalization)
  Sender: FDA-Public Use
  Company Number: NL-ABBOTT-12P-114-0918087-06

PATIENT
  Age: 43 None
  Sex: Female

DRUGS (11)
  1. HUMIRA [Suspect]
     Indication: CROHN^S DISEASE
     Dosage: 160 mg baseline/80 mg week 2/ 40 mg 1 in 2 weeks
     Route: 058
     Dates: start: 20080930, end: 20090731
  2. CORTICOSTEROIDS [Concomitant]
     Indication: PRODUCT USED FOR UNKNOWN INDICATION
  3. QUESTRAN [Concomitant]
     Indication: DIARRHOEA
     Dates: start: 20081230
  4. AZATHIOPRINE [Concomitant]
     Indication: CROHN^S DISEASE
     Dates: start: 20090112
  5. PREDNISONE [Concomitant]
     Indication: CROHN^S DISEASE
     Dates: start: 20090226
  6. LOPERAMIDE [Concomitant]
     Indication: DIARRHOEA
     Dates: start: 20080804
  7. HYDROCOBAMINE [Concomitant]
     Indication: VITAMIN SUPPLEMENTATION
     Dosage: 500mcg/ml
     Dates: start: 20061102
  8. CALCICHEW-D3 [Concomitant]
     Indication: OSTEOPOROSIS
     Dosage: 500mg/400IE
     Dates: start: 20061102
  9. PARACETAMOL [Concomitant]
     Indication: ABDOMINAL PAIN
     Dates: start: 20090310
  10. SODIUM [Concomitant]
     Indication: OSTEOPOROSIS
     Dates: start: 20110629
  11. VITAMIN D [Concomitant]
     Indication: OSTEOPOROSIS
     Dosage: Drink
     Dates: start: 201011

REACTIONS (1)
  - Enterocutaneous fistula [Unknown]
